FAERS Safety Report 14745693 (Version 2)
Quarter: 2018Q3

REPORT INFORMATION
  Report Type: Report from Study
  Country: None (occurrence: US)
  Receive Date: 20180411
  Receipt Date: 20180909
  Transmission Date: 20181010
  Serious: Yes (Other)
  Sender: FDA-Public Use
  Company Number: US-ABBVIE-18K-163-2212251-00

PATIENT
  Sex: Female

DRUGS (2)
  1. HUMIRA [Suspect]
     Active Substance: ADALIMUMAB
     Route: 058
  2. HUMIRA [Suspect]
     Active Substance: ADALIMUMAB
     Indication: RHEUMATOID ARTHRITIS
     Route: 058
     Dates: start: 20170919, end: 201712

REACTIONS (11)
  - Gastroenteritis viral [Unknown]
  - Seizure [Unknown]
  - Pain [Unknown]
  - Injection site erythema [Not Recovered/Not Resolved]
  - Fibromyalgia [Unknown]
  - Cardiac disorder [Unknown]
  - Migraine [Unknown]
  - Injection site papule [Unknown]
  - Weight increased [Unknown]
  - Viral infection [Unknown]
  - Injection site bruising [Unknown]

NARRATIVE: CASE EVENT DATE: 2017
